FAERS Safety Report 15958422 (Version 3)
Quarter: 2019Q2

REPORT INFORMATION
  Report Type: Spontaneous
  Country: FR (occurrence: FR)
  Receive Date: 20190213
  Receipt Date: 20190523
  Transmission Date: 20190711
  Serious: Yes (Other)
  Sender: FDA-Public Use
  Company Number: PHHY2019FR019708

PATIENT
  Age: 90 Year
  Sex: Male

DRUGS (5)
  1. BRIMONIDINE [Suspect]
     Active Substance: BRIMONIDINE TARTRATE
     Indication: OPEN ANGLE GLAUCOMA
     Dosage: UNK UKN, UNKNOWN
     Route: 047
  2. DOXYCYCLINE. [Suspect]
     Active Substance: DOXYCYCLINE
     Indication: OPEN ANGLE GLAUCOMA
     Dosage: 50 MG, QD
     Route: 065
  3. CARTEOLOL [Suspect]
     Active Substance: CARTEOLOL
     Indication: OPEN ANGLE GLAUCOMA
     Dosage: UNK UKN, QD
     Route: 047
  4. ACETAZOLAMIDE. [Suspect]
     Active Substance: ACETAZOLAMIDE
     Indication: OPEN ANGLE GLAUCOMA
     Route: 048
  5. BIMATOPROST+TIMOLOL MALEATE [Suspect]
     Active Substance: BIMATOPROST\TIMOLOL MALEATE
     Indication: OPEN ANGLE GLAUCOMA
     Dosage: UNK UKN, QD
     Route: 047

REACTIONS (11)
  - Toxicity to various agents [Recovering/Resolving]
  - Blepharitis [Recovering/Resolving]
  - Ocular hyperaemia [Recovering/Resolving]
  - Ocular surface disease [Recovering/Resolving]
  - Drug intolerance [Unknown]
  - Intraocular pressure increased [Recovering/Resolving]
  - Drug hypersensitivity [Recovering/Resolving]
  - Condition aggravated [Recovering/Resolving]
  - Open angle glaucoma [Recovering/Resolving]
  - Rosacea [Recovering/Resolving]
  - Drug ineffective [Unknown]
